FAERS Safety Report 4555902-2 (Version None)
Quarter: 2005Q1

REPORT INFORMATION
  Report Type: 
  Country: None (occurrence: None)
  Receive Date: 20050119
  Receipt Date: 20041001
  Transmission Date: 20050727
  Serious: Yes (Other)
  Sender: FDA-Public Use
  Company Number: US-MERCK-0410USA00314

PATIENT
  Age: 45 Year
  Sex: Female
  Weight: 81 kg

DRUGS (10)
  1. VIOXX [Suspect]
     Indication: ARTHRITIS
     Route: 048
     Dates: start: 20040501
  2. VIOXX [Suspect]
     Route: 048
     Dates: end: 20041101
  3. VIOXX [Suspect]
     Route: 048
  4. LANTUS [Concomitant]
     Indication: DIABETES MELLITUS INSULIN-DEPENDENT
     Route: 058
  5. HUMALOG [Concomitant]
     Indication: DIABETES MELLITUS INSULIN-DEPENDENT
     Route: 058
  6. CENESTIN [Concomitant]
     Indication: POSTMENOPAUSE
     Route: 048
     Dates: start: 20040101
  7. CRESTOR [Concomitant]
     Indication: BLOOD CHOLESTEROL INCREASED
     Route: 065
  8. LESCOL XL [Concomitant]
     Indication: BLOOD CHOLESTEROL INCREASED
     Route: 065
  9. ZETIA [Concomitant]
     Indication: BLOOD CHOLESTEROL INCREASED
     Route: 048
  10. LUMIGAN [Concomitant]
     Indication: INTRAOCULAR PRESSURE TEST
     Route: 048

REACTIONS (5)
  - ARTHROPATHY [None]
  - CONVULSIVE THRESHOLD LOWERED [None]
  - HEADACHE [None]
  - MUSCLE CONTRACTIONS INVOLUNTARY [None]
  - TONGUE DISORDER [None]
